FAERS Safety Report 7320261-9 (Version None)
Quarter: 2011Q1

REPORT INFORMATION
  Report Type: 
  Country: None (occurrence: None)
  Receive Date: 20110228
  Receipt Date: 20110218
  Transmission Date: 20110831
  Serious: Yes (Hospitalization)
  Sender: FDA-Public Use
  Company Number: JP-ASTRAZENECA-2011SE07114

PATIENT
  Age: 27160 Day
  Sex: Male
  Weight: 45 kg

DRUGS (3)
  1. ZOLADEX [Suspect]
     Indication: PROSTATE CANCER
     Route: 058
     Dates: start: 20091124
  2. CASODEX [Concomitant]
     Indication: PROSTATE CANCER
     Route: 048
     Dates: start: 20090619, end: 20100928
  3. LEUPLIN [Concomitant]
     Route: 058
     Dates: start: 20090710, end: 20091027

REACTIONS (3)
  - INJECTION SITE PAIN [None]
  - RETROPERITONEAL HAEMATOMA [None]
  - SHOCK [None]
